FAERS Safety Report 12650397 (Version 2)
Quarter: 2016Q3

REPORT INFORMATION
  Report Type: Spontaneous
  Country: US (occurrence: US)
  Receive Date: 20160814
  Receipt Date: 20160825
  Transmission Date: 20161109
  Serious: Yes (Hospitalization)
  Sender: FDA-Public Use
  Company Number: US-BEH-2016072215

PATIENT
  Age: 4 Year
  Sex: Male
  Weight: 14.51 kg

DRUGS (21)
  1. DULERA [Concomitant]
     Active Substance: FORMOTEROL FUMARATE DIHYDRATE\MOMETASONE FUROATE
  2. FLUTICASONE [Concomitant]
     Active Substance: FLUTICASONE\FLUTICASONE PROPIONATE
     Dosage: 1 DF, QD (1 SPRAY DAILY)
     Route: 045
  3. HIZENTRA [Suspect]
     Active Substance: HUMAN IMMUNOGLOBULIN G
     Indication: IMMUNODEFICIENCY COMMON VARIABLE
     Dosage: 2 G, QW
     Route: 058
  4. DESONIDE. [Concomitant]
     Active Substance: DESONIDE
     Dosage: 0.05 %, PRN
     Route: 061
  5. CALCIUM [Concomitant]
     Active Substance: CALCIUM
  6. SINGULAIR [Concomitant]
     Active Substance: MONTELUKAST SODIUM
     Dosage: 5 MG, QD
     Route: 048
  7. QVAR [Concomitant]
     Active Substance: BECLOMETHASONE DIPROPIONATE
     Dosage: 40 ?G, QD
     Route: 048
  8. PROAIR HFA [Concomitant]
     Active Substance: ALBUTEROL SULFATE
     Dosage: 90 ?G, QD (AEROSOL INHALER)
     Route: 048
  9. SODIUM BICARBONATE. [Concomitant]
     Active Substance: SODIUM BICARBONATE
     Dosage: 10 ML, QD
     Route: 065
  10. TRIAMCINOLONE [Concomitant]
     Active Substance: TRIAMCINOLONE
  11. ALBUTEROL SULFATE. [Concomitant]
     Active Substance: ALBUTEROL SULFATE
     Dosage: 0.083% (1 VIAL EVERY 4 - 6 HOURS AS NEEDED)
     Route: 065
  12. MULTIVITAMIN                       /00097801/ [Concomitant]
     Active Substance: VITAMINS
  13. SINGULAIR [Concomitant]
     Active Substance: MONTELUKAST SODIUM
     Dosage: 15 MG, QD (10 MG TABLET - ONE HALF PER DAY)
     Route: 048
  14. KEPPRA [Concomitant]
     Active Substance: LEVETIRACETAM
     Dosage: 500 MG, QD
     Route: 048
  15. MIRALAX [Concomitant]
     Active Substance: POLYETHYLENE GLYCOL 3350
     Dosage: 17 G DOSE 1 TO 2 TEASPOONS
     Route: 048
  16. VITAMIN D                          /00107901/ [Concomitant]
     Active Substance: ERGOCALCIFEROL
     Dosage: 2000 IU, QD (AT 6:PM WITH FEED)
     Route: 048
  17. ZYRTEC [Concomitant]
     Active Substance: CETIRIZINE HYDROCHLORIDE
  18. VIMPAT [Concomitant]
     Active Substance: LACOSAMIDE
     Dosage: 50 MG, BID
     Route: 048
  19. SYNTHROID [Concomitant]
     Active Substance: LEVOTHYROXINE SODIUM
     Dosage: 37.5 MG, QD (25 MCG TABLET)
     Route: 048
  20. DIAZEPAM. [Concomitant]
     Active Substance: DIAZEPAM
     Dosage: 12.5 MG - 17.5 MG-20 MG RECTAL KITUNK
     Route: 054
  21. PROBIOTICS [Concomitant]
     Active Substance: PROBIOTICS NOS

REACTIONS (11)
  - Anaphylactic reaction [Recovered/Resolved]
  - Urticaria [Recovered/Resolved]
  - Tachypnoea [Recovered/Resolved]
  - Tachycardia [Recovered/Resolved]
  - Flushing [Recovered/Resolved]
  - Dyspnoea [Recovered/Resolved]
  - Agitation [Recovered/Resolved]
  - Pruritus [Recovered/Resolved]
  - Infusion site erythema [Unknown]
  - Erythema [Recovered/Resolved]
  - Rash [Recovered/Resolved]

NARRATIVE: CASE EVENT DATE: 20160803
